FAERS Safety Report 6044874-X (Version None)
Quarter: 2009Q1

REPORT INFORMATION
  Report Type: 
  Country: None (occurrence: None)
  Receive Date: 20090121
  Receipt Date: 20090106
  Transmission Date: 20090719
  Serious: Yes (Other)
  Sender: FDA-Public Use
  Company Number: JP-TEVA-183974ISR

PATIENT
  Age: 65 Year
  Sex: Male

DRUGS (2)
  1. CISPLATIN [Suspect]
     Indication: GASTRIC CANCER
     Dates: start: 20070601, end: 20070619
  2. IRINOTECAN HYDROCHLORIDE [Suspect]
     Indication: GASTRIC CANCER
     Route: 042
     Dates: start: 20070601, end: 20070619

REACTIONS (4)
  - ANOREXIA [None]
  - BONE MARROW FAILURE [None]
  - CEREBRAL INFARCTION [None]
  - MALAISE [None]
